FAERS Safety Report 6856105-9 (Version None)
Quarter: 2010Q3

REPORT INFORMATION
  Report Type: 
  Country: None (occurrence: None)
  Receive Date: 20100715
  Receipt Date: 20100715
  Transmission Date: 20110219
  Serious: Yes (Life-Threatening)
  Sender: FDA-Public Use
  Company Number: None

PATIENT
  Age: 79 Year
  Sex: Male
  Weight: 71.6 kg

DRUGS (2)
  1. FENTANYL [Suspect]
     Indication: SURGERY
     Dosage: 25 MCG OTHER IV
     Route: 042
     Dates: start: 20100610, end: 20100610
  2. MIDAZOLAM HCL [Suspect]
     Indication: SURGERY
     Dosage: 1 MG ONCE IV
     Route: 042
     Dates: start: 20100610, end: 20100610

REACTIONS (7)
  - APNOEA [None]
  - BLOOD PRESSURE DECREASED [None]
  - CARDIO-RESPIRATORY ARREST [None]
  - HEART RATE DECREASED [None]
  - RESPIRATORY DEPRESSION [None]
  - SOMNOLENCE [None]
  - UNEVALUABLE EVENT [None]
